FAERS Safety Report 9699021 (Version 2)
Quarter: 2013Q4

REPORT INFORMATION
  Report Type: Spontaneous
  Country: US (occurrence: US)
  Receive Date: 20131120
  Receipt Date: 20131120
  Transmission Date: 20140711
  Serious: Yes (Hospitalization)
  Sender: FDA-Public Use
  Company Number: US-DENDREON CORPORATION-2013PROUSA03294

PATIENT
  Age: 57 Year
  Sex: Male

DRUGS (8)
  1. PROVENGE [Suspect]
     Indication: PROSTATE CANCER METASTATIC
     Dosage: 250 ML, SINGLE
     Route: 042
     Dates: start: 20131007, end: 20131007
  2. PROVENGE [Suspect]
     Dosage: 250 ML, SINGLE
     Route: 042
     Dates: start: 20131021, end: 20131021
  3. ASPIRIN [Concomitant]
  4. ALLOPURINOL [Concomitant]
  5. ELIGARD [Concomitant]
     Dosage: EVERY 6 MONTHS
  6. DILACOR XR [Concomitant]
  7. FOLIC ACID [Concomitant]
  8. DITROPAN [Concomitant]

REACTIONS (6)
  - Pulmonary embolism [Unknown]
  - Thrombophlebitis superficial [Not Recovered/Not Resolved]
  - Pleural effusion [Not Recovered/Not Resolved]
  - Disease progression [Not Recovered/Not Resolved]
  - Haematuria [Not Recovered/Not Resolved]
  - Blood potassium decreased [Unknown]
